FAERS Safety Report 4937190-8 (Version None)
Quarter: 2006Q1

REPORT INFORMATION
  Report Type: 
  Country: None (occurrence: None)
  Receive Date: 20060307
  Receipt Date: 20060307
  Transmission Date: 20060701
  Serious: Yes (Death)
  Sender: FDA-Public Use
  Company Number: None

PATIENT
  Age: 55 Year
  Sex: Female
  Weight: 240 kg

DRUGS (11)
  1. BYETTA [Suspect]
     Indication: DIABETES MELLITUS NON-INSULIN-DEPENDENT
     Dosage: 5 MCG OR 10 MCG BID SQ
     Route: 058
     Dates: start: 20060213, end: 20060216
  2. LEVOFLOXACIN [Concomitant]
  3. HUMULIN 70/30 [Concomitant]
  4. AVANDAMET [Concomitant]
  5. GLIMEPIRIDE [Concomitant]
  6. LASIX [Concomitant]
  7. WELLBUTRIN [Concomitant]
  8. L-THYROXINE [Concomitant]
  9. GLYSET [Concomitant]
  10. REGULAR INSULIN [Concomitant]
  11. NPH INSULIN [Concomitant]

REACTIONS (4)
  - ELECTROMECHANICAL DISSOCIATION [None]
  - HYPERHIDROSIS [None]
  - NAUSEA [None]
  - VOMITING [None]
